FAERS Safety Report 23406868 (Version 1)
Quarter: 2024Q1

REPORT INFORMATION
  Report Type: Spontaneous
  Country: US (occurrence: US)
  Receive Date: 20240116
  Receipt Date: 20240116
  Transmission Date: 20240410
  Serious: Yes (Hospitalization)
  Sender: FDA-Public Use
  Company Number: US-BAUSCH-BL-2024-000419

PATIENT
  Sex: Female

DRUGS (1)
  1. SILIQ [Suspect]
     Active Substance: BRODALUMAB
     Indication: Product used for unknown indication
     Route: 065
     Dates: start: 202307

REACTIONS (2)
  - Diverticulitis [Unknown]
  - Candida infection [Unknown]
